FAERS Safety Report 14930850 (Version 1)
Quarter: 2018Q2

REPORT INFORMATION
  Report Type: Spontaneous
  Country: US (occurrence: US)
  Receive Date: 20180524
  Receipt Date: 20180524
  Transmission Date: 20180711
  Serious: No
  Sender: FDA-Public Use
  Company Number: US-ASTRAZENECA-2018SE57257

PATIENT
  Age: 25923 Day
  Sex: Female
  Weight: 87.5 kg

DRUGS (3)
  1. BYDUREON [Suspect]
     Active Substance: EXENATIDE
     Indication: TYPE 2 DIABETES MELLITUS
     Dosage: ONE BYDUREON WITH A BIG NEEDLE AND ONE WITH A SMALLER NEEDLE
     Route: 058
  2. BYDUREON [Suspect]
     Active Substance: EXENATIDE
     Indication: TYPE 2 DIABETES MELLITUS
     Dosage: DOSE IS UNKNOWN BUT SHE BELIEVES THAT IT WAS 2 MG, ONCE A WEEK
     Route: 058
  3. BYDUREON BCISE [Suspect]
     Active Substance: EXENATIDE
     Indication: TYPE 2 DIABETES MELLITUS
     Route: 058
     Dates: start: 2018

REACTIONS (3)
  - Underdose [Unknown]
  - Visual acuity reduced [Unknown]
  - Injection site pain [Unknown]

NARRATIVE: CASE EVENT DATE: 20180425
